FAERS Safety Report 23065154 (Version 5)
Quarter: 2024Q1

REPORT INFORMATION
  Report Type: Spontaneous
  Country: US (occurrence: US)
  Receive Date: 20231013
  Receipt Date: 20240321
  Transmission Date: 20240410
  Serious: Yes (Hospitalization, Other)
  Sender: FDA-Public Use
  Company Number: US-PFIZER INC-202300322215

PATIENT
  Age: 71 Year
  Sex: Female
  Weight: 72.562 kg

DRUGS (3)
  1. LITFULO [Suspect]
     Active Substance: RITLECITINIB TOSYLATE
     Dosage: UNK
     Dates: start: 202308
  2. LITFULO [Suspect]
     Active Substance: RITLECITINIB TOSYLATE
     Dosage: UNK
     Dates: start: 202309
  3. LITFULO [Suspect]
     Active Substance: RITLECITINIB TOSYLATE
     Dosage: 50 MG

REACTIONS (3)
  - Hip arthroplasty [Unknown]
  - Dyspepsia [Recovering/Resolving]
  - Headache [Unknown]
